FAERS Safety Report 5915223-X (Version None)
Quarter: 2008Q4

REPORT INFORMATION
  Report Type: 
  Country: None (occurrence: None)
  Receive Date: 20081010
  Receipt Date: 20081003
  Transmission Date: 20090506
  Serious: Yes (Other)
  Sender: FDA-Public Use
  Company Number: SI-MERCK-0810USA00692

PATIENT
  Age: 10 Year
  Sex: Female

DRUGS (4)
  1. PRIMAXIN [Suspect]
     Indication: PYREXIA
     Route: 051
     Dates: start: 20060101
  2. FLUCONAZOLE [Concomitant]
     Route: 065
     Dates: start: 20060101
  3. CEFTAZIDIME [Concomitant]
     Route: 065
     Dates: start: 20060101
  4. TEICOPLANIN [Concomitant]
     Route: 065
     Dates: start: 20060101

REACTIONS (5)
  - CLOSTRIDIUM DIFFICILE TOXIN TEST POSITIVE [None]
  - MULTI-ORGAN FAILURE [None]
  - RENAL FAILURE [None]
  - ROTAVIRUS TEST POSITIVE [None]
  - SHOCK [None]
